FAERS Safety Report 8062041-5 (Version None)
Quarter: 2012Q1

REPORT INFORMATION
  Report Type: 
  Country: None (occurrence: None)
  Receive Date: 20120123
  Receipt Date: 20120119
  Transmission Date: 20120608
  Serious: Yes (Death, Other)
  Sender: FDA-Public Use
  Company Number: US-BAYER-2012-006494

PATIENT
  Age: 39 Year
  Sex: Female

DRUGS (2)
  1. YAZ [Suspect]
     Dosage: UNK
     Route: 048
     Dates: start: 20020501, end: 20100207
  2. YASMIN [Suspect]
     Dosage: UNK
     Dates: start: 20020501, end: 20100207

REACTIONS (5)
  - PAIN [None]
  - PULMONARY EMBOLISM [None]
  - EMOTIONAL DISTRESS [None]
  - INJURY [None]
  - VENOUS THROMBOSIS LIMB [None]
